FAERS Safety Report 11933269 (Version 2)
Quarter: 2016Q1

REPORT INFORMATION
  Report Type: Spontaneous
  Country: JP (occurrence: JP)
  Receive Date: 20160121
  Receipt Date: 20160217
  Transmission Date: 20160526
  Serious: Yes (Hospitalization, Other)
  Sender: FDA-Public Use
  Company Number: JP-TAKEDA-2016TJP000688

PATIENT
  Age: 83 Year
  Sex: Male

DRUGS (1)
  1. TAKEPRON CAPSULES 15 [Suspect]
     Active Substance: LANSOPRAZOLE
     Indication: PRODUCT USED FOR UNKNOWN INDICATION
     Dosage: UNK
     Route: 065

REACTIONS (6)
  - Pyrexia [Unknown]
  - General physical health deterioration [Unknown]
  - Dermatitis exfoliative [Unknown]
  - Renal impairment [Unknown]
  - Oedema [Unknown]
  - Sepsis [Unknown]
